FAERS Safety Report 10793068 (Version 1)
Quarter: 2015Q1

REPORT INFORMATION
  Report Type: Spontaneous
  Country: IT (occurrence: IT)
  Receive Date: 20150213
  Receipt Date: 20150213
  Transmission Date: 20150721
  Serious: Yes (Other)
  Sender: FDA-Public Use
  Company Number: IT-ASTRAZENECA-2015SE11985

PATIENT
  Age: 28557 Day
  Sex: Male
  Weight: 85 kg

DRUGS (2)
  1. REMIFENTANIL [Concomitant]
     Active Substance: REMIFENTANIL
     Dates: start: 20150127, end: 20150128
  2. PROPOFOL. [Suspect]
     Active Substance: PROPOFOL
     Indication: SEDATION
     Route: 040
     Dates: start: 20150125, end: 20150128

REACTIONS (1)
  - Post-injection delirium sedation syndrome [Recovering/Resolving]

NARRATIVE: CASE EVENT DATE: 20150127
